FAERS Safety Report 9485925 (Version 1)
Quarter: 2013Q3

REPORT INFORMATION
  Report Type: Spontaneous
  Country: US (occurrence: US)
  Receive Date: 20130829
  Receipt Date: 20130829
  Transmission Date: 20140515
  Serious: No
  Sender: FDA-Public Use
  Company Number: US-GLAXOSMITHKLINE-A1020116A

PATIENT
  Sex: Female

DRUGS (2)
  1. ZOVIRAX [Suspect]
     Indication: ORAL HERPES
     Route: 048
  2. ZOVIRAX [Suspect]
     Indication: ORAL HERPES
     Route: 061

REACTIONS (1)
  - Drug ineffective [Unknown]
